FAERS Safety Report 13115902 (Version 2)
Quarter: 2017Q1

REPORT INFORMATION
  Report Type: Report from Study
  Country: US (occurrence: US)
  Receive Date: 20170115
  Receipt Date: 20170220
  Transmission Date: 20170428
  Serious: Yes (Life-Threatening, Other)
  Sender: FDA-Public Use
  Company Number: PHEH2017US001527

PATIENT
  Age: 27 Year
  Sex: Female
  Weight: 79.4 kg

DRUGS (1)
  1. GILENYA [Suspect]
     Active Substance: FINGOLIMOD HYDROCHLORIDE
     Indication: MULTIPLE SCLEROSIS
     Dosage: 0.5 MG, QD
     Route: 048
     Dates: start: 20161001, end: 201702

REACTIONS (7)
  - Malaise [Unknown]
  - Nasal congestion [Unknown]
  - Neutrophil count decreased [Unknown]
  - Pharyngitis streptococcal [Recovered/Resolved]
  - Lymphocyte count decreased [Unknown]
  - Leukopenia [Unknown]
  - Feeling abnormal [Unknown]

NARRATIVE: CASE EVENT DATE: 20170107
